FAERS Safety Report 13446258 (Version 2)
Quarter: 2017Q2

REPORT INFORMATION
  Report Type: Spontaneous
  Country: VE (occurrence: VE)
  Receive Date: 20170417
  Receipt Date: 20170504
  Transmission Date: 20170830
  Serious: Yes (Other)
  Sender: FDA-Public Use
  Company Number: VE-UCBSA-2017014476

PATIENT
  Age: 62 Year
  Sex: Female
  Weight: 63 kg

DRUGS (1)
  1. KEPPRA [Suspect]
     Active Substance: LEVETIRACETAM
     Indication: CRANIOCEREBRAL INJURY
     Dosage: 1000 MG, 2X/DAY (BID)
     Route: 048

REACTIONS (3)
  - Drug dose omission [Unknown]
  - Seizure [Not Recovered/Not Resolved]
  - Product availability issue [Unknown]
